FAERS Safety Report 17767659 (Version 1)
Quarter: 2020Q2

REPORT INFORMATION
  Report Type: Spontaneous
  Country: DE (occurrence: DE)
  Receive Date: 20200511
  Receipt Date: 20200511
  Transmission Date: 20200714
  Serious: Yes (Other)
  Sender: FDA-Public Use
  Company Number: NVSC2020DE127136

PATIENT
  Sex: Female
  Weight: 80 kg

DRUGS (2)
  1. MOMETAHEXAL [Suspect]
     Active Substance: MOMETASONE
     Indication: MITE ALLERGY
     Dosage: 2 DF, QD
     Route: 065
     Dates: start: 20200422
  2. MOMETAHEXAL [Suspect]
     Active Substance: MOMETASONE
     Indication: SEASONAL ALLERGY
     Dosage: 2 DF, QD
     Route: 065
     Dates: start: 20200426

REACTIONS (6)
  - Respiratory tract infection [Unknown]
  - Rash pruritic [Unknown]
  - Nasal congestion [Unknown]
  - Pain [Unknown]
  - Haemoptysis [Unknown]
  - Sputum discoloured [Unknown]

NARRATIVE: CASE EVENT DATE: 2020
